FAERS Safety Report 8888934 (Version 1)
Quarter: 2012Q4

REPORT INFORMATION
  Report Type: 
  Country: US (occurrence: US)
  Receive Date: 20121106
  Receipt Date: 20121106
  Transmission Date: 20130627
  Serious: Yes (Other)
  Sender: FDA-Public Use
  Company Number: US-ASTRAZENECA-2011SE74612

PATIENT
  Age: 41 Year
  Sex: Female
  Weight: 146 kg

DRUGS (6)
  1. CRESTOR [Suspect]
     Indication: BLOOD CHOLESTEROL INCREASED
     Route: 048
     Dates: start: 20111209, end: 20111209
  2. NIASPAN [Concomitant]
     Indication: BLOOD CHOLESTEROL INCREASED
     Route: 048
     Dates: start: 2003
  3. TRILIPIX [Concomitant]
     Indication: BLOOD CHOLESTEROL INCREASED
     Route: 048
     Dates: start: 2003
  4. TOPROL XL [Concomitant]
     Indication: HYPERTENSION
     Route: 048
     Dates: start: 20031029
  5. LISINOPRIL [Concomitant]
     Indication: HYPERTENSION
     Route: 048
     Dates: start: 2004
  6. HCTZ [Concomitant]
     Indication: HYPERTELORISM OF ORBIT
     Route: 048
     Dates: start: 2004

REACTIONS (4)
  - Angioedema [Recovered/Resolved]
  - Burning sensation [Unknown]
  - Chest pain [Unknown]
  - Paraesthesia oral [Unknown]
